FAERS Safety Report 8190725-7 (Version None)
Quarter: 2012Q1

REPORT INFORMATION
  Report Type: 
  Country: None (occurrence: None)
  Receive Date: 20120307
  Receipt Date: 20120223
  Transmission Date: 20120608
  Serious: Yes (Death, Life-Threatening, Hospitalization)
  Sender: FDA-Public Use
  Company Number: CZ-ROCHE-1030061

PATIENT
  Sex: Female

DRUGS (22)
  1. VINCRISTINE SULFATE [Suspect]
     Indication: PRODUCT USED FOR UNKNOWN INDICATION
     Route: 042
     Dates: start: 20111110
  2. URSOSAN [Concomitant]
     Route: 048
     Dates: start: 20111221, end: 20111222
  3. MUCOSOLVAN [Concomitant]
     Dosage: INHALATION TOGETHER WITH BERODUAL, ENDOTRACHEOPULMONARY INSTILLATION, SOLUTION
     Dates: start: 20111216, end: 20111222
  4. CYCLOPHOSPHAMIDE [Concomitant]
     Indication: DIFFUSE LARGE B-CELL LYMPHOMA
     Route: 042
     Dates: start: 20111129, end: 20111129
  5. CYCLOPHOSPHAMIDE [Suspect]
     Indication: PRODUCT USED FOR UNKNOWN INDICATION
     Route: 042
     Dates: start: 20111110
  6. MABTHERA [Suspect]
     Route: 042
     Dates: start: 20111129, end: 20111129
  7. VINCRISTINE [Concomitant]
     Indication: DIFFUSE LARGE B-CELL LYMPHOMA
     Route: 042
     Dates: start: 20111129, end: 20111129
  8. ACIDUM URSODEOXYCHOLICUM [Concomitant]
     Dates: start: 20020615
  9. PREDNISONE TAB [Suspect]
     Indication: PRODUCT USED FOR UNKNOWN INDICATION
     Route: 048
     Dates: start: 20111110
  10. PEGFILGRASTIM [Suspect]
     Indication: PRODUCT USED FOR UNKNOWN INDICATION
     Route: 058
     Dates: start: 20111110
  11. NEUPOGEN [Concomitant]
     Route: 058
     Dates: start: 20111201, end: 20111222
  12. TRANSMETIL [Concomitant]
     Dosage: 11.12. ONE DOSE CANCELLED
     Route: 042
     Dates: start: 20111206, end: 20111218
  13. PREDNISONE TAB [Concomitant]
     Indication: DIFFUSE LARGE B-CELL LYMPHOMA
     Route: 048
     Dates: start: 20111129, end: 20111203
  14. MABTHERA [Suspect]
     Indication: DIFFUSE LARGE B-CELL LYMPHOMA
     Route: 042
     Dates: start: 20111109
  15. DOXORUBICIN HYDROCHLORIDE [Suspect]
     Indication: PRODUCT USED FOR UNKNOWN INDICATION
     Route: 042
     Dates: start: 20111110
  16. BATRAFEN [Concomitant]
     Dosage: ON THE NAILS
     Route: 061
     Dates: start: 20111209, end: 20111217
  17. OMEPRAZOLE [Concomitant]
     Dates: start: 20111013
  18. TRANSMETIL [Concomitant]
     Route: 042
     Dates: start: 20111221, end: 20111222
  19. OMEPRAZOLE [Concomitant]
     Dosage: 1 DAY QUAMATEL
     Route: 042
     Dates: start: 20111020, end: 20111211
  20. DOXORUBICIN HCL [Concomitant]
     Indication: DIFFUSE LARGE B-CELL LYMPHOMA
     Route: 042
     Dates: start: 20111129, end: 20111129
  21. BERODUAL [Concomitant]
     Dosage: INHALATION TOGETHER WITH MUCOSOLVAN, ENDOTRACHEOPULMONARY INSTILLATION, SOLUTION
     Dates: start: 20111216, end: 20111222
  22. OXICONAZOLE NITRATE [Concomitant]
     Dosage: ON SOLE OF FOOT
     Route: 061
     Dates: start: 20111209, end: 20111217

REACTIONS (10)
  - SEPTIC SHOCK [None]
  - WHITE BLOOD CELL COUNT DECREASED [None]
  - STOMATITIS [None]
  - MULTI-ORGAN FAILURE [None]
  - DYSPHAGIA [None]
  - ACUTE RESPIRATORY FAILURE [None]
  - FEBRILE NEUTROPENIA [None]
  - MUCOSAL INFLAMMATION [None]
  - APHAGIA [None]
  - ACUTE RESPIRATORY DISTRESS SYNDROME [None]
